FAERS Safety Report 15327259 (Version 1)
Quarter: 2018Q4

REPORT INFORMATION
  Report Type: Spontaneous
  Country: US (occurrence: US)
  Receive Date: 20180828
  Receipt Date: 20180828
  Transmission Date: 20190204
  Serious: No
  Sender: FDA-Public Use
  Company Number: US-OREXO US, INC.-E2B_00000095

PATIENT
  Age: 88 Year
  Sex: Female
  Weight: 52.61 kg

DRUGS (2)
  1. ZUBSOLV [Suspect]
     Active Substance: BUPRENORPHINE HYDROCHLORIDE\NALOXONE HYDROCHLORIDE
     Indication: DRUG DEPENDENCE
     Dosage: 1
     Route: 060
     Dates: start: 20180410
  2. GABAPENTIN. [Concomitant]
     Active Substance: GABAPENTIN
     Route: 048

REACTIONS (1)
  - Product administration error [Unknown]

NARRATIVE: CASE EVENT DATE: 20180523
